FAERS Safety Report 7522713-5 (Version None)
Quarter: 2011Q2

REPORT INFORMATION
  Report Type: 
  Country: None (occurrence: None)
  Receive Date: 20110603
  Receipt Date: 20110602
  Transmission Date: 20111010
  Serious: Yes (Death, Other)
  Sender: FDA-Public Use
  Company Number: US-AMGEN-USASP2011016433

PATIENT
  Age: 85 Year
  Sex: Male
  Weight: 61.224 kg

DRUGS (3)
  1. NPLATE [Suspect]
     Indication: IDIOPATHIC THROMBOCYTOPENIC PURPURA
     Dosage: 308 A?G, UNK
     Dates: start: 20090326, end: 20110311
  2. CORTICOSTEROIDS [Concomitant]
  3. PREDNISONE [Concomitant]

REACTIONS (10)
  - DEATH [None]
  - CONTUSION [None]
  - IMPAIRED HEALING [None]
  - CHRONIC MYELOMONOCYTIC LEUKAEMIA [None]
  - PNEUMONIA [None]
  - THROMBOCYTOPENIA [None]
  - DRUG INEFFECTIVE [None]
  - INFECTION [None]
  - HAEMORRHAGE [None]
  - PLATELET COUNT DECREASED [None]
